FAERS Safety Report 9195858 (Version 2)
Quarter: 2013Q2

REPORT INFORMATION
  Report Type: Spontaneous
  Country: US (occurrence: None)
  Receive Date: 20120703
  Receipt Date: 20121031
  Transmission Date: 20140414
  Serious: Yes (Other)
  Sender: FDA-Public Use
  Company Number: PHEH2012US010508

PATIENT
  Age: 32 Year
  Sex: Male
  Weight: 90 kg

DRUGS (2)
  1. GILENYA [Suspect]
     Indication: MULTIPLE SCLEROSIS
     Route: 048
     Dates: start: 20120106, end: 20120403
  2. VITAMIN D (ERGOCALCIFEROL) [Concomitant]

REACTIONS (3)
  - Papilloma viral infection [None]
  - White blood cell count decreased [None]
  - Fatigue [None]
